FAERS Safety Report 6403404-0 (Version None)
Quarter: 2009Q4

REPORT INFORMATION
  Report Type: 
  Country: None (occurrence: None)
  Receive Date: 20091016
  Receipt Date: 20091011
  Transmission Date: 20100525
  Serious: Yes (Death)
  Sender: FDA-Public Use
  Company Number: US-ROCHE-662132

PATIENT
  Sex: Male
  Weight: 103 kg

DRUGS (4)
  1. PEG-INTERFERON ALFA 2A (RO 25-8310) [Suspect]
     Dosage: LAST DOSE PRIOR TO SAE: 18 SEPT 2009
     Route: 058
     Dates: start: 20090608, end: 20091004
  2. RIBAVIRIN [Suspect]
     Dosage: LAST DOSE PRIOR TO SAE: 24 SEPT 2009
     Route: 048
     Dates: start: 20090608, end: 20091004
  3. GLYBURIDE [Suspect]
     Indication: DRUG USE FOR UNKNOWN INDICATION
     Route: 065
  4. METFORMIN HYDROCHLORIDE [Suspect]
     Indication: DRUG USE FOR UNKNOWN INDICATION
     Route: 065

REACTIONS (1)
  - DEATH [None]
